FAERS Safety Report 17109144 (Version 1)
Quarter: 2019Q4

REPORT INFORMATION
  Report Type: Spontaneous
  Country: JP (occurrence: JP)
  Receive Date: 20191204
  Receipt Date: 20191204
  Transmission Date: 20200122
  Serious: Yes (Hospitalization, Other)
  Sender: FDA-Public Use
  Company Number: JP-ACCORD-163592

PATIENT
  Age: 84 Year
  Sex: Male

DRUGS (2)
  1. QUETIAPINE. [Suspect]
     Active Substance: QUETIAPINE
     Indication: INSOMNIA
  2. SUVOREXANT. [Interacting]
     Active Substance: SUVOREXANT
     Indication: INSOMNIA
     Dosage: AT BEDTIME

REACTIONS (2)
  - Drug interaction [Unknown]
  - Delirium [Recovered/Resolved]
